FAERS Safety Report 25912020 (Version 1)
Quarter: 2025Q4

REPORT INFORMATION
  Report Type: Spontaneous
  Country: EU (occurrence: EU)
  Receive Date: 20251013
  Receipt Date: 20251013
  Transmission Date: 20260117
  Serious: Yes (Life-Threatening, Other)
  Sender: CHEPLAPHARM
  Company Number: None

PATIENT
  Sex: Male

DRUGS (5)
  1. ISOTRETINOIN [Suspect]
     Active Substance: ISOTRETINOIN
  2. OLANZAPINE [Suspect]
     Active Substance: OLANZAPINE
  3. QUETIAPINE [Suspect]
     Active Substance: QUETIAPINE
  4. ABILIFY [Suspect]
     Active Substance: ARIPIPRAZOLE
     Dosage: 10 MG
     Route: 048
     Dates: start: 20051010, end: 20250701
  5. VENLAFAXINE [Suspect]
     Active Substance: VENLAFAXINE HYDROCHLORIDE

REACTIONS (5)
  - Behaviour disorder [Recovering/Resolving]
  - Ill-defined disorder [Recovering/Resolving]
  - Anxiety [Recovering/Resolving]
  - Drug abuse [Unknown]
  - Toxicity to various agents [Unknown]
